FAERS Safety Report 23169038 (Version 1)
Quarter: 2023Q4

REPORT INFORMATION
  Report Type: Spontaneous
  Country: DE (occurrence: DE)
  Receive Date: 20231110
  Receipt Date: 20231110
  Transmission Date: 20240110
  Serious: Yes (Other)
  Sender: FDA-Public Use
  Company Number: DE-SANDOZ-SDZ2023DE004249

PATIENT
  Sex: Female

DRUGS (10)
  1. EXEMESTANE [Suspect]
     Active Substance: EXEMESTANE
     Indication: HER2 positive breast cancer
     Dosage: 25 MILLIGRAM, ONCE A DAY (25 MG, QD)
     Route: 048
     Dates: start: 20191219
  2. FULVESTRANT [Suspect]
     Active Substance: FULVESTRANT
     Indication: Product used for unknown indication
     Dosage: UNK
     Route: 065
     Dates: start: 20211013, end: 20211013
  3. KISQALI [Suspect]
     Active Substance: RIBOCICLIB
     Indication: HER2 positive breast cancer
     Dosage: 600 MG (SCHEME 21 DAYS TAKEN E, 7 DAYS BREAK )
     Route: 048
     Dates: start: 20200108, end: 20200219
  4. KISQALI [Suspect]
     Active Substance: RIBOCICLIB
     Dosage: UNK (0 MG, QD)
     Route: 048
     Dates: start: 20200220, end: 20200308
  5. KISQALI [Suspect]
     Active Substance: RIBOCICLIB
     Dosage: 600 MG (SCHEME 21 DAYS TAKEN E, 7 DAYS BREAK)
     Route: 048
     Dates: start: 20200309, end: 20220828
  6. KISQALI [Suspect]
     Active Substance: RIBOCICLIB
     Dosage: UNK
     Route: 065
     Dates: start: 20211013, end: 20211013
  7. KISQALI [Suspect]
     Active Substance: RIBOCICLIB
     Dosage: UNK (0 MG)
     Route: 048
     Dates: start: 20220829, end: 20220904
  8. KISQALI [Suspect]
     Active Substance: RIBOCICLIB
     Dosage: 600 MG (SCHEME 21 DAYS TAKEN E, 7 DAYS BREAK)
     Route: 048
     Dates: start: 20220905, end: 20221030
  9. KISQALI [Suspect]
     Active Substance: RIBOCICLIB
     Dosage: UNK (0 MG, QD)
     Route: 048
     Dates: start: 20221031, end: 20221108
  10. KISQALI [Suspect]
     Active Substance: RIBOCICLIB
     Dosage: 400 MG (SCHEME 21 DAYS TAKEN E, 7 DAYS BREAK)
     Route: 065
     Dates: start: 20221109

REACTIONS (1)
  - Renal failure [Not Recovered/Not Resolved]

NARRATIVE: CASE EVENT DATE: 20211013
